FAERS Safety Report 8146508-7 (Version None)
Quarter: 2012Q1

REPORT INFORMATION
  Report Type: 
  Country: None (occurrence: None)
  Receive Date: 20120217
  Receipt Date: 20111109
  Transmission Date: 20120608
  Serious: No
  Sender: FDA-Public Use
  Company Number: US-ABBOTT-11P-163-0872744-00

PATIENT
  Sex: Male
  Weight: 90.8 kg

DRUGS (1)
  1. SIMCOR [Suspect]
     Indication: BLOOD CHOLESTEROL ABNORMAL
     Dosage: 1000/20

REACTIONS (5)
  - ILL-DEFINED DISORDER [None]
  - HYPERHIDROSIS [None]
  - FEELING HOT [None]
  - PRURITUS [None]
  - FLUSHING [None]
